FAERS Safety Report 4830610-9 (Version None)
Quarter: 2005Q4

REPORT INFORMATION
  Report Type: 
  Country: None (occurrence: None)
  Receive Date: 20051115
  Receipt Date: 20051102
  Transmission Date: 20060501
  Serious: Yes (Other)
  Sender: FDA-Public Use
  Company Number: HQWYE357802NOV05

PATIENT
  Age: 71 Year
  Sex: Female

DRUGS (1)
  1. PANTECTA       (PANTOPRAZOLE, TABLET, DELAYED RELEASE) [Suspect]
     Dosage: 40 MG 1X PER 1 DAY ORAL
     Route: 048

REACTIONS (1)
  - GASTRITIS [None]
